FAERS Safety Report 18510426 (Version 1)
Quarter: 2020Q4

REPORT INFORMATION
  Report Type: Spontaneous
  Country: US (occurrence: US)
  Receive Date: 20201116
  Receipt Date: 20201116
  Transmission Date: 20210114
  Serious: Yes (Other)
  Sender: FDA-Public Use
  Company Number: None

PATIENT
  Sex: Female

DRUGS (3)
  1. METHOCARBAM [Concomitant]
     Active Substance: METHOCARBAMOL
  2. ACTEMRA [Suspect]
     Active Substance: TOCILIZUMAB
     Indication: CUTANEOUS VASCULITIS
     Route: 058
     Dates: start: 20200227
  3. OXYCODONE [Concomitant]
     Active Substance: OXYCODONE

REACTIONS (2)
  - Therapy interrupted [None]
  - Surgery [None]
